FAERS Safety Report 8120874-0 (Version None)
Quarter: 2012Q1

REPORT INFORMATION
  Report Type: 
  Country: None (occurrence: None)
  Receive Date: 20120203
  Receipt Date: 20120117
  Transmission Date: 20120608
  Serious: Yes (Other)
  Sender: FDA-Public Use
  Company Number: 20120014

PATIENT
  Age: 90 Year
  Sex: Male

DRUGS (3)
  1. CEFTRIAXONE [Suspect]
     Indication: ARTHRITIS BACTERIAL
     Dosage: 2 G/DAY INTRAVENOUS
     Route: 042
  2. VANCOMYCIN [Suspect]
     Indication: ARTHRITIS BACTERIAL
  3. PREDNISONE TAB [Suspect]
     Indication: ARTHRITIS BACTERIAL

REACTIONS (4)
  - ACUTE HEPATIC FAILURE [None]
  - HEPATIC ENCEPHALOPATHY [None]
  - ASTERIXIS [None]
  - AUTOIMMUNE HEPATITIS [None]
